FAERS Safety Report 4343676-X (Version None)
Quarter: 2004Q2

REPORT INFORMATION
  Report Type: 
  Country: None (occurrence: None)
  Receive Date: 20040422
  Receipt Date: 20040409
  Transmission Date: 20050107
  Serious: Yes (Life-Threatening)
  Sender: FDA-Public Use
  Company Number: 200411523FR

PATIENT
  Age: 74 Year
  Sex: Male

DRUGS (7)
  1. LOVENOX [Suspect]
     Indication: THROMBOSIS PROPHYLAXIS
     Route: 058
     Dates: start: 20040219, end: 20040229
  2. LASIX [Suspect]
     Indication: CARDIAC DISORDER
     Route: 048
  3. TRIATEC 2.5 MG [Suspect]
     Indication: CARDIAC DISORDER
     Route: 048
  4. GLUCOPHAGE [Suspect]
     Indication: DIABETES MELLITUS
     Route: 048
  5. IODE [Suspect]
     Route: 042
     Dates: start: 20040218, end: 20040218
  6. CORDARONE [Concomitant]
     Indication: CARDIAC DISORDER
     Route: 048
  7. DIAMICRON [Concomitant]

REACTIONS (3)
  - GENERAL PHYSICAL HEALTH DETERIORATION [None]
  - HYPERKALAEMIA [None]
  - RENAL FAILURE ACUTE [None]
